FAERS Safety Report 10170551 (Version 3)
Quarter: 2014Q2

REPORT INFORMATION
  Report Type: Report from Study
  Country: IN (occurrence: IN)
  Receive Date: 20140513
  Receipt Date: 20140604
  Transmission Date: 20141212
  Serious: Yes (Death, Other)
  Sender: FDA-Public Use
  Company Number: PHHY2012IN096554

PATIENT
  Age: 42 Year
  Sex: Male
  Weight: 55.4 kg

DRUGS (1)
  1. GLIVEC [Suspect]
     Indication: CHRONIC MYELOID LEUKAEMIA
     Dosage: 600 MG
     Route: 048

REACTIONS (8)
  - Death [Fatal]
  - Blast crisis in myelogenous leukaemia [Unknown]
  - Haemoglobin decreased [Unknown]
  - Gait disturbance [Unknown]
  - Pallor [Unknown]
  - Hepatomegaly [Unknown]
  - Mouth haemorrhage [Unknown]
  - Malaise [Unknown]
